FAERS Safety Report 4928785-6 (Version None)
Quarter: 2006Q1

REPORT INFORMATION
  Report Type: 
  Country: None (occurrence: None)
  Receive Date: 20060223
  Receipt Date: 20060215
  Transmission Date: 20060701
  Serious: Yes (Disabling, Other)
  Sender: FDA-Public Use
  Company Number: 2006022587

PATIENT
  Age: 78 Year
  Sex: Male
  Weight: 76.2043 kg

DRUGS (12)
  1. ZYVOX [Suspect]
     Indication: STAPHYLOCOCCAL INFECTION
     Dosage: 1200 MG  (600 MG, 2 IN 1 D),  ORAL
     Route: 048
     Dates: start: 20060128
  2. PROTONIX [Concomitant]
  3. ASPIRIN [Concomitant]
  4. ISORDIL [Concomitant]
  5. LASIX [Concomitant]
  6. FLURAZEPAM [Concomitant]
  7. LEVODOPA-CARBIDOPA (CARBIDOPA, LEVODOPA) [Concomitant]
  8. COUMADIN [Concomitant]
  9. ENALAPRIL MALEATE [Concomitant]
  10. ALLOPURINOL [Concomitant]
  11. DIGOXIN [Concomitant]
  12. ZOCOR [Concomitant]

REACTIONS (4)
  - DEPRESSION [None]
  - DYSPHAGIA [None]
  - HYPERSOMNIA [None]
  - ORAL INTAKE REDUCED [None]
